FAERS Safety Report 10180451 (Version 1)
Quarter: 2014Q2

REPORT INFORMATION
  Report Type: Spontaneous
  Country: US (occurrence: US)
  Receive Date: 20140519
  Receipt Date: 20140519
  Transmission Date: 20141212
  Serious: No
  Sender: FDA-Public Use
  Company Number: US-AMGEN INC.-USASP2014000352

PATIENT
  Sex: Female

DRUGS (4)
  1. PROLIA [Suspect]
     Indication: OSTEOPOROSIS POSTMENOPAUSAL
     Dosage: UNK UNK, Q6MO
     Route: 065
     Dates: start: 2012
  2. CALCIUM [Concomitant]
  3. POTASSIUM                          /00031402/ [Concomitant]
  4. MAGNESIUM                          /00082501/ [Concomitant]

REACTIONS (2)
  - Back pain [Unknown]
  - Arthralgia [Unknown]
